FAERS Safety Report 17902553 (Version 5)
Quarter: 2020Q4

REPORT INFORMATION
  Report Type: Spontaneous
  Country: US (occurrence: US)
  Receive Date: 20200616
  Receipt Date: 20201201
  Transmission Date: 20210113
  Serious: No
  Sender: FDA-Public Use
  Company Number: US-PFIZER INC-2020233317

PATIENT
  Age: 74 Year
  Sex: Female
  Weight: 77.11 kg

DRUGS (20)
  1. BETAMETHASONE CLOTRIMAZOLE [Concomitant]
     Active Substance: BETAMETHASONE DIPROPIONATE\CLOTRIMAZOLE
     Dosage: UNK, 2X/DAY [1%-0.05% TOPICAL CREAM/APPLY TO THE AFFECTED AREA(S) TOPICALLY ON BACK OF THIGH TWICE D
     Route: 061
  2. ACYCLOVIR [ACICLOVIR] [Concomitant]
     Active Substance: ACYCLOVIR
     Dosage: 800 MG, AS NEEDED [TAKE 1 TABLET(S) TWICE A DAY BY ORAL ROUTE AS NEEDED]
     Route: 048
  3. KETOCONAZOLE. [Concomitant]
     Active Substance: KETOCONAZOLE
     Dosage: 2 %, 2X/DAY [APPLY TO THE AFFECTED AREA(S) TOPICALLY TWICE DAILY UNTIL RESOLVED THEN AS NEEDED]
     Route: 061
  4. KETOCONAZOLE. [Concomitant]
     Active Substance: KETOCONAZOLE
     Dosage: 2 %, AS NEEDED [APPLY TO THE AFFECTED AREA(S) TOPICALLY TWICE DAILY UNTIL RESOLVED THEN AS NEEDED]
     Route: 061
  5. METHYLPREDNISOLONE. [Concomitant]
     Active Substance: METHYLPREDNISOLONE
     Dosage: UNK [DOSE PACK 4 MG TBPK]
  6. MUPIROCIN. [Concomitant]
     Active Substance: MUPIROCIN
     Dosage: UNK, 2X/DAY [APPLY TO BIOPSY SITE OR ANY OPEN CUTS TOPICALLY TWICE DAILY]
     Route: 061
  7. NEOMYCIN AND POLYMYXIN B SULFATES AND HYDROCORTISONE [Concomitant]
     Active Substance: HYDROCORTISONE\NEOMYCIN SULFATE\POLYMYXIN B SULFATE
     Dosage: UNK, AS NEEDED [NEOMYCIN-POLYMYXIN-HYDROCORT 3.5 MG-10,000 UNIT/ML-1% EAR DROPS, SUSP PRN (AS NEEDED
  8. PANTOPRAZOLE SODIUM. [Concomitant]
     Active Substance: PANTOPRAZOLE SODIUM
     Dosage: 40 MG, 1X/DAY
     Route: 048
  9. NYSTATIN AND TRIAMCINOLONE [Concomitant]
     Active Substance: NYSTATIN\TRIAMCINOLONE ACETONIDE
     Dosage: UNK, 2X/DAY [100,000 UNIT/G-0.1% TOPICAL CREAM/APPLY TO THE AFFECTED AREA(S) TOPICALLY TWICE DAILY I
     Route: 061
  10. LYRICA [Suspect]
     Active Substance: PREGABALIN
     Dosage: 100 MG, 3X/DAY
     Route: 048
  11. CLOBETASOL [Concomitant]
     Active Substance: CLOBETASOL
     Dosage: 0.05 %, AS NEEDED [0.05 % SCALP SOLUTION PRN (AS NEEDED)]
  12. OMEPRAZOLE. [Concomitant]
     Active Substance: OMEPRAZOLE
     Dosage: 20 MG, AS NEEDED [TAKE 1 CAPSULE(S) AS NEEDED]
     Route: 048
  13. TRIAMCINOLONE ACETONIDE. [Concomitant]
     Active Substance: TRIAMCINOLONE ACETONIDE
     Dosage: 0.1 %, 2X/DAY
     Route: 061
  14. DICYCLOMINE [DICYCLOVERINE HYDROCHLORIDE] [Concomitant]
     Active Substance: DICYCLOMINE HYDROCHLORIDE
     Dosage: 10 MG, AS NEEDED [TAKE ONE CAPSULE BY MOUTH EVERY 6 TO 8 HOURS AS NEEDED]
     Route: 048
  15. LORATADINE. [Concomitant]
     Active Substance: LORATADINE
     Dosage: 10 MG, DAILY [ONE TABLET BY MOUTH ONE TIME DAILY]
     Route: 048
  16. LORAZEPAM. [Concomitant]
     Active Substance: LORAZEPAM
     Dosage: 1 MG, AS NEEDED [1 MG TABLET PRN (AS NEEDED)]
  17. OXYBUTYNIN CHLORIDE. [Concomitant]
     Active Substance: OXYBUTYNIN CHLORIDE
     Dosage: 5 MG, 1X/DAY
     Route: 048
  18. DICLOFENAC [Concomitant]
     Active Substance: DICLOFENAC
     Dosage: 2 G, 4X/DAY [APPLY TWO GRAMS TO THE AFFECTED AREA(S) TOPICALLY FOUR TIMES A DAY]
     Route: 061
  19. AMOXICILLIN. [Concomitant]
     Active Substance: AMOXICILLIN
     Dosage: 875 MG
  20. ESTRADIOL. [Concomitant]
     Active Substance: ESTRADIOL
     Dosage: 0.5 G, 2X/WEEK [INSERT 0.5 GRAMS BY VAGINAL ROUTE TWICE A WEEK AT BEDTIME]
     Route: 067

REACTIONS (3)
  - Limb discomfort [Unknown]
  - Fatigue [Unknown]
  - Gait disturbance [Unknown]

NARRATIVE: CASE EVENT DATE: 20200609
